FAERS Safety Report 21590174 (Version 1)
Quarter: 2022Q4

REPORT INFORMATION
  Report Type: Spontaneous
  Country: DK (occurrence: DK)
  Receive Date: 20221114
  Receipt Date: 20221114
  Transmission Date: 20230113
  Serious: Yes (Other)
  Sender: FDA-Public Use
  Company Number: None

PATIENT
  Age: 27 Year
  Sex: Female

DRUGS (1)
  1. HYRIMOZ [Suspect]
     Active Substance: ADALIMUMAB-ADAZ
     Indication: Skin disorder
     Dosage: 40 MG, QW
     Route: 065
     Dates: start: 20220823

REACTIONS (1)
  - Erysipelas [Unknown]

NARRATIVE: CASE EVENT DATE: 20220910
